FAERS Safety Report 18086881 (Version 1)
Quarter: 2020Q3

REPORT INFORMATION
  Report Type: Spontaneous
  Country: US (occurrence: US)
  Receive Date: 20200729
  Receipt Date: 20200729
  Transmission Date: 20201103
  Serious: Yes (Other)
  Sender: FDA-Public Use
  Company Number: US-LEADINGPHARMA-US-2020LEALIT00117

PATIENT
  Age: 3 Year
  Sex: Male

DRUGS (11)
  1. KETAMINE [Interacting]
     Active Substance: KETAMINE
     Indication: SEIZURE
     Dosage: 1 MG/KG
     Route: 040
  2. MIDAZOLAM. [Suspect]
     Active Substance: MIDAZOLAM
     Dosage: 1.2 MG/KG/H
     Route: 065
  3. PROPOFOL. [Suspect]
     Active Substance: PROPOFOL
     Indication: SEIZURE
  4. KETAMINE [Interacting]
     Active Substance: KETAMINE
     Dosage: 0.5?2 MG/KG/H
     Route: 065
  5. FOSPHENYTOIN [Suspect]
     Active Substance: FOSPHENYTOIN
     Indication: SEIZURE
     Route: 065
  6. MIDAZOLAM. [Suspect]
     Active Substance: MIDAZOLAM
     Indication: SEIZURE
     Route: 045
  7. LORAZEPAM TABLETS USP [Suspect]
     Active Substance: LORAZEPAM
     Indication: SEIZURE
     Route: 042
  8. LACOSAMIDE. [Suspect]
     Active Substance: LACOSAMIDE
     Indication: SEIZURE
     Route: 065
  9. KETAMINE [Interacting]
     Active Substance: KETAMINE
     Dosage: 2 MG/KG
  10. LEVETIRACETAM. [Suspect]
     Active Substance: LEVETIRACETAM
     Indication: SEIZURE
     Route: 065
  11. KETAMINE [Interacting]
     Active Substance: KETAMINE
     Dosage: 3 MG/KG/H.
     Route: 065

REACTIONS (1)
  - Drug ineffective for unapproved indication [Unknown]
